FAERS Safety Report 6810717-7 (Version None)
Quarter: 2010Q2

REPORT INFORMATION
  Report Type: 
  Country: None (occurrence: None)
  Receive Date: 20100630
  Receipt Date: 20070724
  Transmission Date: 20101027
  Serious: No
  Sender: FDA-Public Use
  Company Number: US-PFIZER INC-2007061240

PATIENT
  Sex: Female
  Weight: 57 kg

DRUGS (1)
  1. ESTRING [Suspect]
     Indication: HYSTERECTOMY
     Dates: start: 20070701, end: 20070701

REACTIONS (1)
  - VULVOVAGINAL PAIN [None]
